FAERS Safety Report 25883796 (Version 1)
Quarter: 2025Q4

REPORT INFORMATION
  Report Type: Spontaneous
  Country: ID (occurrence: ID)
  Receive Date: 20251006
  Receipt Date: 20251006
  Transmission Date: 20260118
  Serious: Yes (Other)
  Sender: MACLEODS
  Company Number: ID-MLMSERVICE-20250905-PI632413-00129-1

PATIENT

DRUGS (1)
  1. DOXYCYCLINE [Suspect]
     Active Substance: DOXYCYCLINE
     Indication: Murine typhus
     Dosage: DAYS 4 TO 6 2 X100 MG PER ORAL
     Route: 048

REACTIONS (1)
  - Rash [Recovered/Resolved]
